FAERS Safety Report 8581678-8 (Version None)
Quarter: 2012Q3

REPORT INFORMATION
  Report Type: 
  Country: None (occurrence: None)
  Receive Date: 20120727
  Receipt Date: 20120711
  Transmission Date: 20120928
  Serious: Yes (Death, Other)
  Sender: FDA-Public Use
  Company Number: TPA2012A03697

PATIENT
  Age: 79 Year
  Sex: Male
  Weight: 79.3795 kg

DRUGS (5)
  1. ACTOS [Suspect]
     Indication: TYPE 2 DIABETES MELLITUS
     Dates: start: 20090401, end: 20100401
  2. ACTOS [Suspect]
     Indication: TYPE 2 DIABETES MELLITUS
     Dates: start: 20090101, end: 20090301
  3. LANTUS [Concomitant]
  4. SITAGLIPTIN PHOSPHATE [Concomitant]
  5. ROSIGLITAZONE [Concomitant]

REACTIONS (1)
  - BLADDER CANCER [None]
